FAERS Safety Report 8611014-X (Version None)
Quarter: 2012Q3

REPORT INFORMATION
  Report Type: 
  Country: None (occurrence: None)
  Receive Date: 20120822
  Receipt Date: 20120816
  Transmission Date: 20120928
  Serious: Yes (Other)
  Sender: FDA-Public Use
  Company Number: CA-PFIZER INC-2012201056

PATIENT
  Age: 53 Year
  Sex: Female

DRUGS (9)
  1. TANDRILAX [Concomitant]
     Dosage: UNK
  2. SUTENT [Suspect]
     Dosage: 50 MG, UNK
     Dates: start: 20120601, end: 20120601
  3. DILTIAZEM [Concomitant]
     Dosage: UNK
  4. MELATONIN [Concomitant]
     Dosage: UNK
  5. GABAPENTIN [Concomitant]
     Dosage: UNK
  6. PANTOPRAZOLE [Concomitant]
     Dosage: UNK
  7. SUTENT [Suspect]
     Dosage: 25 MG, UNK
     Dates: start: 20120718, end: 20120724
  8. LEVOTHYROXINE [Concomitant]
     Dosage: UNK
  9. DEXAMETHASONE [Concomitant]
     Dosage: UNK

REACTIONS (1)
  - CHOLESTASIS [None]
